FAERS Safety Report 7284882-4 (Version None)
Quarter: 2011Q1

REPORT INFORMATION
  Report Type: 
  Country: None (occurrence: None)
  Receive Date: 20110204
  Receipt Date: 20110204
  Transmission Date: 20110831
  Serious: Yes (Other)
  Sender: FDA-Public Use
  Company Number: None

PATIENT
  Age: 25 Year
  Sex: Female
  Weight: 56.6996 kg

DRUGS (1)
  1. SOTRET [Suspect]
     Indication: ACNE
     Dosage: 15MG, 30 MG, 40MG 2 PER DAY PO
     Route: 048
     Dates: start: 20080619, end: 20081210

REACTIONS (16)
  - LIP DRY [None]
  - GAIT DISTURBANCE [None]
  - DIARRHOEA [None]
  - DRY SKIN [None]
  - ACTIVITIES OF DAILY LIVING IMPAIRED [None]
  - PAIN IN EXTREMITY [None]
  - SCAR [None]
  - ARTHRITIS [None]
  - IRRITABLE BOWEL SYNDROME [None]
  - DRUG INEFFECTIVE [None]
  - CONSTIPATION [None]
  - HAEMATOCHEZIA [None]
  - ARTERIOSCLEROSIS [None]
  - ARTHRALGIA [None]
  - BACK PAIN [None]
  - FOOD INTOLERANCE [None]
